FAERS Safety Report 9778649 (Version 1)
Quarter: 2013Q4

REPORT INFORMATION
  Report Type: Spontaneous
  Country: US (occurrence: None)
  Receive Date: 20131219
  Receipt Date: 20131219
  Transmission Date: 20140711
  Serious: Yes (Hospitalization)
  Sender: FDA-Public Use
  Company Number: JPI-P-032132

PATIENT
  Age: 65 Year
  Sex: Female

DRUGS (1)
  1. XYREM [Suspect]
     Indication: PRODUCT USED FOR UNKNOWN INDICATION
     Route: 048
     Dates: start: 200505

REACTIONS (3)
  - Post procedural complication [None]
  - Limb operation [None]
  - Surgical procedure repeated [None]
